FAERS Safety Report 14630532 (Version 4)
Quarter: 2018Q2

REPORT INFORMATION
  Report Type: Spontaneous
  Country: AR (occurrence: AR)
  Receive Date: 20180313
  Receipt Date: 20180423
  Transmission Date: 20180711
  Serious: Yes (Other)
  Sender: FDA-Public Use
  Company Number: AR-009507513-1803ARG004377

PATIENT
  Age: 42 Year
  Sex: Male

DRUGS (1)
  1. KEYTRUDA [Suspect]
     Active Substance: PEMBROLIZUMAB
     Indication: SUPERFICIAL SPREADING MELANOMA STAGE UNSPECIFIED
     Dosage: UNK

REACTIONS (3)
  - Surgery [Unknown]
  - Malignant neoplasm progression [Unknown]
  - Transaminases increased [Unknown]

NARRATIVE: CASE EVENT DATE: 20110611
